FAERS Safety Report 25433400 (Version 1)
Quarter: 2025Q2

REPORT INFORMATION
  Report Type: Spontaneous
  Country: US (occurrence: None)
  Receive Date: 20250612
  Receipt Date: 20250612
  Transmission Date: 20250716
  Serious: Yes (Hospitalization)
  Sender: FDA-CTU
  Company Number: None

PATIENT
  Age: 63 Year
  Sex: Female

DRUGS (11)
  1. POMALYST [Suspect]
     Active Substance: POMALIDOMIDE
     Indication: Plasma cell myeloma
     Route: 048
     Dates: start: 20220216
  2. ASPIRIN [Concomitant]
     Active Substance: ASPIRIN
  3. DARZALEX [Concomitant]
     Active Substance: DARATUMUMAB
  4. DEXAMETH PHO [Concomitant]
  5. ISONIAZID [Concomitant]
     Active Substance: ISONIAZID
  6. METFORMIN [Concomitant]
     Active Substance: METFORMIN HYDROCHLORIDE
  7. MULTI-VITAMN [Concomitant]
  8. PYRIDOXINE [Concomitant]
     Active Substance: PYRIDOXINE
  9. REVLIMID [Concomitant]
     Active Substance: LENALIDOMIDE
  10. SERTRALINE [Concomitant]
     Active Substance: SERTRALINE HYDROCHLORIDE
  11. SODIUM BICAR [Concomitant]

REACTIONS (2)
  - Pneumonia [None]
  - Therapy interrupted [None]

NARRATIVE: CASE EVENT DATE: 20250524
